FAERS Safety Report 25362074 (Version 2)
Quarter: 2025Q2

REPORT INFORMATION
  Report Type: Spontaneous
  Country: US (occurrence: US)
  Receive Date: 20250527
  Receipt Date: 20250606
  Transmission Date: 20250717
  Serious: Yes (Death, Other)
  Sender: RANBAXY
  Company Number: US-SUN PHARMACEUTICAL INDUSTRIES LTD-2025R1-505242

PATIENT
  Sex: Female

DRUGS (3)
  1. DOXORUBICIN [Suspect]
     Active Substance: DOXORUBICIN
     Indication: Invasive ductal breast carcinoma
     Route: 065
  2. PACLITAXEL [Suspect]
     Active Substance: PACLITAXEL
     Indication: Invasive ductal breast carcinoma
     Dosage: 80 MILLIGRAM/SQ. METER, WEEKLY
     Route: 065
  3. CYCLOPHOSPHAMIDE [Suspect]
     Active Substance: CYCLOPHOSPHAMIDE
     Indication: Invasive ductal breast carcinoma
     Route: 065

REACTIONS (2)
  - Disease progression [Fatal]
  - Sarcoid-like reaction [Unknown]
